FAERS Safety Report 5027739-1 (Version None)
Quarter: 2006Q2

REPORT INFORMATION
  Report Type: 
  Country: None (occurrence: None)
  Receive Date: 20060616
  Receipt Date: 20060609
  Transmission Date: 20061013
  Serious: Yes (Hospitalization)
  Sender: FDA-Public Use
  Company Number: PHEH2006US07632

PATIENT
  Age: 94 Year
  Sex: Female

DRUGS (1)
  1. ENABLEX [Suspect]

REACTIONS (6)
  - ABDOMINAL DISTENSION [None]
  - CONFUSIONAL STATE [None]
  - MENTAL IMPAIRMENT [None]
  - OXYGEN SATURATION DECREASED [None]
  - SMALL INTESTINAL OBSTRUCTION [None]
  - VOMITING [None]
